FAERS Safety Report 6215256-2 (Version None)
Quarter: 2009Q2

REPORT INFORMATION
  Report Type: 
  Country: None (occurrence: None)
  Receive Date: 20090604
  Receipt Date: 20090527
  Transmission Date: 20091009
  Serious: Yes (Hospitalization)
  Sender: FDA-Public Use
  Company Number: ES-BRISTOL-MYERS SQUIBB COMPANY-14642789

PATIENT
  Age: 89 Year
  Sex: Male

DRUGS (2)
  1. METFORMIN HCL [Suspect]
     Indication: TYPE 2 DIABETES MELLITUS
     Dosage: METFORMIN HCL 850MG TABS
     Route: 048
     Dates: start: 20060101, end: 20071018
  2. GLIBENCLAMIDE [Interacting]
     Indication: TYPE 2 DIABETES MELLITUS
     Route: 048
     Dates: start: 20060101, end: 20071018

REACTIONS (3)
  - DISORIENTATION [None]
  - DRUG INTERACTION [None]
  - HYPOGLYCAEMIA [None]
